FAERS Safety Report 5586541-2 (Version None)
Quarter: 2008Q1

REPORT INFORMATION
  Report Type: 
  Country: None (occurrence: None)
  Receive Date: 20080110
  Receipt Date: 20080103
  Transmission Date: 20080703
  Serious: Yes (Other)
  Sender: FDA-Public Use
  Company Number: US-SANOFI-SYNTHELABO-A03200603419

PATIENT
  Sex: Female
  Weight: 68.9 kg

DRUGS (28)
  1. LIPITOR [Concomitant]
     Dosage: UNK
     Route: 048
  2. AMBIEN [Suspect]
     Indication: INSOMNIA
     Route: 048
     Dates: start: 20060401, end: 20060502
  3. CYCLOBENZAPRINE HCL [Concomitant]
     Route: 048
  4. FOSAMAX [Concomitant]
     Dosage: UNK
     Route: 048
  5. MULTI-VITAMIN [Concomitant]
     Dosage: UNK
     Route: 048
  6. EFFEXOR [Concomitant]
     Dosage: UNK
     Route: 048
  7. CARISOPRODOL [Concomitant]
     Route: 048
  8. ROXICET [Concomitant]
     Dosage: 5/325 MG
     Route: 048
  9. CELEBREX [Concomitant]
     Route: 048
  10. CODEINE + ACETAMINOPHEN #3 [Concomitant]
     Dosage: 30/300 MG
     Route: 048
  11. PROPOXYPHENE HCL AND ACETAMINOPHEN [Concomitant]
     Dosage: 100/650 MG
     Route: 048
  12. TRAMADOL HCL [Concomitant]
     Route: 048
  13. DIAZEPAM [Concomitant]
     Route: 048
  14. ETODOLAC [Concomitant]
     Route: 048
  15. LYRICA [Concomitant]
     Route: 048
  16. OXAPROZIN [Concomitant]
     Route: 048
  17. OXYCODONE [Concomitant]
     Route: 048
  18. KETOPROFEN [Concomitant]
     Route: 048
  19. NAPROXEN [Concomitant]
     Route: 048
  20. NAPROXEN [Concomitant]
     Route: 048
  21. METHOCARBAMOL [Concomitant]
     Route: 048
  22. AMITRIPTYLINE HCL [Concomitant]
     Route: 048
  23. METHYLPREDNISOLONE [Concomitant]
     Route: 048
  24. IBUPROFEN [Concomitant]
     Route: 048
  25. IBUPROFEN [Concomitant]
     Route: 048
  26. VICODIN [Concomitant]
     Dosage: 5/500 MG
     Route: 048
  27. VICODIN [Concomitant]
     Dosage: 7.5/750 MG
     Route: 048
  28. AMBIEN CR [Suspect]
     Indication: INSOMNIA
     Route: 048
     Dates: start: 20060101

REACTIONS (13)
  - ABNORMAL BEHAVIOUR [None]
  - AMNESIA [None]
  - HALLUCINATION [None]
  - JOINT SPRAIN [None]
  - MUSCLE SPASMS [None]
  - MUSCLE TIGHTNESS [None]
  - MUSCULOSKELETAL PAIN [None]
  - NECK PAIN [None]
  - ROAD TRAFFIC ACCIDENT [None]
  - SLEEP TALKING [None]
  - SOMNAMBULISM [None]
  - SWELLING [None]
  - WHIPLASH INJURY [None]
